FAERS Safety Report 7635989-0 (Version None)
Quarter: 2011Q3

REPORT INFORMATION
  Report Type: 
  Country: None (occurrence: None)
  Receive Date: 20110726
  Receipt Date: 20110720
  Transmission Date: 20111222
  Serious: Yes (Hospitalization)
  Sender: FDA-Public Use
  Company Number: US-ELI_LILLY_AND_COMPANY-US201011007251

PATIENT
  Sex: Male
  Weight: 47.6 kg

DRUGS (5)
  1. CLONIDINE [Concomitant]
  2. MELATONIN [Concomitant]
  3. HUMATROPE [Suspect]
     Indication: GROWTH HORMONE DEFICIENCY
     Dosage: 2.6 ML, UNK
     Route: 058
  4. TESTOSTERONE [Concomitant]
  5. FOCALIN [Concomitant]

REACTIONS (1)
  - CHARGE SYNDROME [None]
